FAERS Safety Report 22221681 (Version 2)
Quarter: 2023Q2

REPORT INFORMATION
  Report Type: Spontaneous
  Country: JP (occurrence: JP)
  Receive Date: 20230418
  Receipt Date: 20230424
  Transmission Date: 20230721
  Serious: Yes (Other)
  Sender: FDA-Public Use
  Company Number: JP-002147023-NVSJ2023JP006428

PATIENT
  Sex: Female

DRUGS (7)
  1. CYCLOSPORINE [Suspect]
     Active Substance: CYCLOSPORINE
     Indication: Product used for unknown indication
     Dosage: 40 MG
     Route: 048
  2. PREDNISOLONE [Concomitant]
     Active Substance: PREDNISOLONE
     Indication: Product used for unknown indication
     Dosage: 7 MG
     Route: 048
  3. FLUCONAZOLE [Concomitant]
     Active Substance: FLUCONAZOLE
     Indication: Product used for unknown indication
     Dosage: 100 MG
     Route: 048
  4. LEVOTHYROXINE [Concomitant]
     Active Substance: LEVOTHYROXINE
     Indication: Product used for unknown indication
     Dosage: 75 UG
     Route: 048
  5. OLOPATADINE [Concomitant]
     Active Substance: OLOPATADINE
     Indication: Product used for unknown indication
     Dosage: 10 MG
     Route: 048
  6. BROTIZOLAM [Concomitant]
     Active Substance: BROTIZOLAM
     Indication: Product used for unknown indication
     Dosage: 0.125 MG
     Route: 048
  7. ALENDRONATE [Concomitant]
     Active Substance: ALENDRONATE SODIUM
     Indication: Product used for unknown indication
     Dosage: 35 MG/ WEEK
     Route: 048

REACTIONS (1)
  - Oesophageal squamous cell carcinoma [Unknown]
